FAERS Safety Report 4284752-X (Version None)
Quarter: 2004Q1

REPORT INFORMATION
  Report Type: 
  Country: None (occurrence: None)
  Receive Date: 20040130
  Receipt Date: 20040109
  Transmission Date: 20041129
  Serious: Yes (Death, Hospitalization, Other)
  Sender: FDA-Public Use
  Company Number: JP_031202292

PATIENT
  Age: 76 Year
  Sex: Male

DRUGS (2)
  1. GEMZAR [Suspect]
     Indication: NON-SMALL CELL LUNG CANCER
     Dosage: 1200 MG/OTHER
     Route: 050
     Dates: start: 20030513, end: 20031028
  2. PREDONINE (PEDNISOLONE) [Concomitant]

REACTIONS (6)
  - DYSPNOEA [None]
  - INTERSTITIAL LUNG DISEASE [None]
  - LABORATORY TEST ABNORMAL [None]
  - PCO2 DECREASED [None]
  - PNEUMONIA STAPHYLOCOCCAL [None]
  - PO2 DECREASED [None]
